FAERS Safety Report 18267127 (Version 2)
Quarter: 2020Q3

REPORT INFORMATION
  Report Type: Spontaneous
  Country: US (occurrence: US)
  Receive Date: 20200915
  Receipt Date: 20200928
  Transmission Date: 20201103
  Serious: Yes (Death, Other)
  Sender: FDA-Public Use
  Company Number: NVSC2020US251116

PATIENT
  Age: 22 Year
  Sex: Male
  Weight: 89.5 kg

DRUGS (2)
  1. VOTRIENT [Suspect]
     Active Substance: PAZOPANIB HYDROCHLORIDE
     Indication: MALIGNANT RESPIRATORY TRACT NEOPLASM
     Dosage: 800 MG, QD
     Route: 048
  2. VOTRIENT [Suspect]
     Active Substance: PAZOPANIB HYDROCHLORIDE
     Indication: SARCOMA
     Dosage: UNK, (DOSE ESCALATED TO 600 MG, QD)
     Route: 048
     Dates: start: 20200318, end: 20200709

REACTIONS (5)
  - Synovial sarcoma [Fatal]
  - Pulseless electrical activity [Unknown]
  - Malignant neoplasm progression [Fatal]
  - Sarcoma [Fatal]
  - Chest pain [Unknown]

NARRATIVE: CASE EVENT DATE: 20200718
